FAERS Safety Report 8779339 (Version 3)
Quarter: 2013Q1

REPORT INFORMATION
  Report Type: Spontaneous
  Country: CN (occurrence: CN)
  Receive Date: 20120911
  Receipt Date: 20130318
  Transmission Date: 20140127
  Serious: Yes (Other)
  Sender: FDA-Public Use
  Company Number: CN-PFIZER INC-2012221968

PATIENT
  Age: 46 Year
  Sex: Female

DRUGS (2)
  1. LYRICA [Suspect]
     Indication: NEURALGIA
     Dosage: 75 MG, 2X/DAY
     Route: 048
     Dates: start: 201208, end: 201208
  2. TRAMADOL/ACETAMINOPHEN [Concomitant]
     Indication: NEURALGIA
     Dosage: ONE TABLET DAILY
     Route: 048
     Dates: start: 201208, end: 201208

REACTIONS (2)
  - Blindness transient [Recovering/Resolving]
  - Papilloedema [Unknown]
